FAERS Safety Report 9529536 (Version 3)
Quarter: 2013Q4

REPORT INFORMATION
  Report Type: Report from Study
  Country: BR (occurrence: BR)
  Receive Date: 20130917
  Receipt Date: 20131114
  Transmission Date: 20140711
  Serious: Yes (Other)
  Sender: FDA-Public Use
  Company Number: PHHY2013BR103090

PATIENT
  Sex: Female

DRUGS (1)
  1. EXFORGE HCT [Suspect]
     Indication: HYPERTENSION
     Dosage: 1 DF (160 MG VALS, 10 MG AMLO AND 12.5 MG HCTZ), DAILY
     Route: 048

REACTIONS (6)
  - Erythema [Recovered/Resolved]
  - Feeling hot [Recovered/Resolved]
  - Hot flush [Recovered/Resolved]
  - Generalised oedema [Unknown]
  - Swelling face [Recovered/Resolved]
  - Local swelling [Recovering/Resolving]
